FAERS Safety Report 11865256 (Version 1)
Quarter: 2015Q4

REPORT INFORMATION
  Report Type: Spontaneous
  Country: ID (occurrence: ID)
  Receive Date: 20151223
  Receipt Date: 20151223
  Transmission Date: 20160305
  Serious: Yes (Hospitalization)
  Sender: FDA-Public Use
  Company Number: ID-BAXTER-2015BAX069616

PATIENT
  Age: 42 Year
  Sex: Male
  Weight: 62 kg

DRUGS (4)
  1. NAVELBINE [Suspect]
     Active Substance: VINORELBINE TARTRATE
     Indication: OFF LABEL USE
  2. SODIUM CHLORIDE 0.9% [Suspect]
     Active Substance: SODIUM CHLORIDE
     Indication: PRODUCT USED FOR UNKNOWN INDICATION
     Dosage: DAY 1
     Route: 041
     Dates: start: 20151212
  3. CARBOPLATIN. [Suspect]
     Active Substance: CARBOPLATIN
     Indication: SQUAMOUS CELL CARCINOMA
     Dosage: AUC 5, DAY 1
     Route: 065
     Dates: start: 20151212
  4. NAVELBINE [Suspect]
     Active Substance: VINORELBINE TARTRATE
     Indication: SQUAMOUS CELL CARCINOMA
     Dosage: DAY 1
     Route: 041
     Dates: start: 20151212

REACTIONS (2)
  - Off label use [Unknown]
  - Phlebitis [Recovering/Resolving]

NARRATIVE: CASE EVENT DATE: 20151212
